FAERS Safety Report 6716961-1 (Version None)
Quarter: 2010Q2

REPORT INFORMATION
  Report Type: 
  Country: None (occurrence: None)
  Receive Date: 20100510
  Receipt Date: 20100510
  Transmission Date: 20101027
  Serious: Yes (Hospitalization)
  Sender: FDA-Public Use
  Company Number: None

PATIENT
  Age: 9 Year
  Sex: Male
  Weight: 31.7518 kg

DRUGS (2)
  1. TYLENOL PAIN RELIEVER [Suspect]
     Indication: FEELING COLD
     Dates: start: 20100410, end: 20100410
  2. TYLENOL PAIN RELIEVER [Suspect]
     Indication: PYREXIA
     Dates: start: 20100410, end: 20100410

REACTIONS (13)
  - ABASIA [None]
  - AXILLARY PAIN [None]
  - BACTERIAL INFECTION [None]
  - CHEST PAIN [None]
  - DYSPNOEA [None]
  - LIP SWELLING [None]
  - NASAL CONGESTION [None]
  - OROPHARYNGEAL PAIN [None]
  - RED BLOOD CELL COUNT DECREASED [None]
  - SWELLING [None]
  - URTICARIA [None]
  - VIRAL INFECTION [None]
  - WHITE BLOOD CELL COUNT INCREASED [None]
